FAERS Safety Report 7130871-X (Version None)
Quarter: 2010Q4

REPORT INFORMATION
  Report Type: 
  Country: None (occurrence: None)
  Receive Date: 20101201
  Receipt Date: 20101025
  Transmission Date: 20110411
  Serious: Yes (Other)
  Sender: FDA-Public Use
  Company Number: PHHY2010IT73911

PATIENT
  Sex: Female
  Weight: 54 kg

DRUGS (2)
  1. DESFERRIOXAMINE MESYLATE [Suspect]
     Indication: THALASSAEMIA BETA
  2. HEPATITIS B VACCINE [Concomitant]
     Dosage: UNK
     Dates: start: 19850101

REACTIONS (3)
  - CAESAREAN SECTION [None]
  - DRUG EXPOSURE DURING PREGNANCY [None]
  - NORMAL NEWBORN [None]
